FAERS Safety Report 4885438-0 (Version None)
Quarter: 2005Q4

REPORT INFORMATION
  Report Type: 
  Country: None (occurrence: None)
  Receive Date: 20051220
  Receipt Date: 20041215
  Transmission Date: 20060501
  Serious: Yes (Other)
  Sender: FDA-Public Use
  Company Number: HQWYE053817DEC04

PATIENT
  Sex: Male

DRUGS (1)
  1. EFFEXOR XR [Suspect]
     Indication: DEPRESSION
     Dosage: 75 MG (FREQUENCY UNKNOWN)
     Dates: start: 20041109, end: 20041201

REACTIONS (2)
  - BURNING SENSATION [None]
  - PARAESTHESIA [None]
